FAERS Safety Report 22103663 (Version 2)
Quarter: 2024Q4

REPORT INFORMATION
  Report Type: Spontaneous
  Country: US (occurrence: US)
  Receive Date: 20230316
  Receipt Date: 20241118
  Transmission Date: 20250115
  Serious: No
  Sender: VIIV
  Company Number: US-VIIV HEALTHCARE LIMITED-US2023037850

PATIENT
  Age: 29 Year
  Sex: Male

DRUGS (3)
  1. CABENUVA [Suspect]
     Active Substance: CABOTEGRAVIR\RILPIVIRINE
     Indication: Product used for unknown indication
     Dosage: UNK, MO
  2. CABENUVA [Suspect]
     Active Substance: CABOTEGRAVIR\RILPIVIRINE
     Dosage: UNK, Q2M
  3. CABENUVA [Suspect]
     Active Substance: CABOTEGRAVIR\RILPIVIRINE

REACTIONS (1)
  - Product dose omission issue [Unknown]

NARRATIVE: CASE EVENT DATE: 20230124
